FAERS Safety Report 8335622-9 (Version None)
Quarter: 2012Q2

REPORT INFORMATION
  Report Type: 
  Country: None (occurrence: None)
  Receive Date: 20120504
  Receipt Date: 20120426
  Transmission Date: 20120825
  Serious: Yes (Other)
  Sender: FDA-Public Use
  Company Number: FR-BIOGENIDEC-2012BI014946

PATIENT
  Sex: Female

DRUGS (5)
  1. MODAFINIL [Concomitant]
  2. VITAMIN D [Concomitant]
  3. TYSABRI [Suspect]
     Indication: MULTIPLE SCLEROSIS
     Route: 042
     Dates: start: 20081204
  4. ANTI HISTAMINE H1 [Concomitant]
  5. BENZODIAZEPINE [Concomitant]

REACTIONS (1)
  - OPPORTUNISTIC INFECTION [None]
